FAERS Safety Report 15942668 (Version 1)
Quarter: 2019Q1

REPORT INFORMATION
  Report Type: Spontaneous
  Country: US (occurrence: US)
  Receive Date: 20190209
  Receipt Date: 20190209
  Transmission Date: 20190417
  Serious: Yes (Other)
  Sender: FDA-Public Use
  Company Number: US-TEVA-2019-US-1008025

PATIENT
  Sex: Female

DRUGS (3)
  1. SOTALOL HYDROCHLORIDE TABLET [Suspect]
     Active Substance: SOTALOL HYDROCHLORIDE
     Route: 065
     Dates: start: 20190117, end: 20190123
  2. SOTALOL HYDROCHLORIDE TABLET [Suspect]
     Active Substance: SOTALOL HYDROCHLORIDE
     Indication: ATRIAL FIBRILLATION
     Dosage: 240 MILLIGRAM DAILY;
     Route: 065
     Dates: start: 20181226
  3. SOTALOL HYDROCHLORIDE TABLET [Suspect]
     Active Substance: SOTALOL HYDROCHLORIDE
     Route: 065
     Dates: start: 20190112

REACTIONS (10)
  - Suicidal ideation [Recovered/Resolved]
  - Abnormal dreams [Unknown]
  - Feeling abnormal [Recovered/Resolved]
  - Visual impairment [Not Recovered/Not Resolved]
  - Depression [Unknown]
  - Toxicity to various agents [Unknown]
  - Feeling abnormal [Unknown]
  - Vision blurred [Unknown]
  - Corrective lens user [Unknown]
  - Diplopia [Unknown]

NARRATIVE: CASE EVENT DATE: 20181227
